FAERS Safety Report 5962099-0 (Version None)
Quarter: 2008Q4

REPORT INFORMATION
  Report Type: 
  Country: None (occurrence: None)
  Receive Date: 20081121
  Receipt Date: 20081110
  Transmission Date: 20090506
  Serious: Yes (Other)
  Sender: FDA-Public Use
  Company Number: DE-WYE-G02542108

PATIENT
  Age: 74 Year
  Sex: Male

DRUGS (13)
  1. TREVILOR RETARD [Suspect]
     Indication: DEPRESSION
     Route: 048
     Dates: start: 20080802, end: 20080821
  2. TREVILOR RETARD [Interacting]
     Route: 048
     Dates: start: 20080822, end: 20080825
  3. RYTMONORM [Concomitant]
     Route: 048
  4. PANTOPRAZOLE SODIUM [Concomitant]
     Route: 048
  5. ARICEPT [Concomitant]
     Indication: DEMENTIA
     Dosage: 5 MG EVERY 1 TOT
     Route: 048
     Dates: start: 20080821, end: 20080821
  6. AKINETON [Interacting]
     Route: 048
     Dates: start: 20080802, end: 20080802
  7. MARCUMAR [Concomitant]
     Dosage: ACCORDING TO QUICK TEST
     Route: 048
  8. DIPIPERON [Concomitant]
     Dosage: 40 MG EVERY 1 TOT
     Route: 048
     Dates: start: 20080802, end: 20080802
  9. DIOVAN [Concomitant]
     Indication: HYPERTENSION
     Route: 048
     Dates: end: 20080804
  10. DIOVAN [Concomitant]
     Route: 048
     Dates: start: 20080805, end: 20080822
  11. DIOVAN [Concomitant]
     Route: 048
     Dates: start: 20080823
  12. ZYPREXA [Interacting]
     Route: 048
     Dates: start: 20080801, end: 20080801
  13. ZYPREXA [Interacting]
     Route: 048
     Dates: start: 20080802, end: 20080802

REACTIONS (7)
  - BLOOD PRESSURE DECREASED [None]
  - DELIRIUM [None]
  - DRUG INTERACTION [None]
  - GAIT DISTURBANCE [None]
  - HYPERTENSIVE CRISIS [None]
  - HYPONATRAEMIA [None]
  - UNRESPONSIVE TO STIMULI [None]
